FAERS Safety Report 17788659 (Version 1)
Quarter: 2020Q2

REPORT INFORMATION
  Report Type: Report from Study
  Country: GR (occurrence: GR)
  Receive Date: 20200514
  Receipt Date: 20200514
  Transmission Date: 20200714
  Serious: Yes (Hospitalization)
  Sender: FDA-Public Use
  Company Number: GR-TAKEDA-2017MPI010236

PATIENT
  Age: 71 Year
  Sex: Male
  Weight: 104 kg

DRUGS (25)
  1. THYROHORMONE [Concomitant]
     Active Substance: LEVOTHYROXINE SODIUM
     Dosage: 2 MG, QD
     Route: 048
     Dates: start: 1999
  2. FENISTIL [Concomitant]
     Active Substance: DIMETHINDENE
     Dosage: 4 MG, UNK
     Route: 042
     Dates: start: 20171220
  3. DECADRON [Suspect]
     Active Substance: DEXAMETHASONE
     Dosage: 20 MILLIGRAM
     Route: 048
     Dates: start: 20171220, end: 20180118
  4. ZOLEDRONIC ACID [Concomitant]
     Active Substance: ZOLEDRONIC ACID
     Dosage: UNK
     Route: 065
  5. ZYLAPOUR [Concomitant]
     Dosage: 300 MG, QD
     Route: 048
     Dates: start: 20171220
  6. SINGULAIR [Concomitant]
     Active Substance: MONTELUKAST SODIUM
     Dosage: 10 MG, UNK
     Route: 048
     Dates: start: 20170110
  7. NEUROBION                          /00810901/ [Concomitant]
     Dosage: UNK UNK, QD
     Route: 048
     Dates: start: 20171220
  8. SOLOSA [Concomitant]
     Active Substance: GLIMEPIRIDE
     Dosage: 2 MG, QD
     Route: 048
  9. APROVEL [Concomitant]
     Active Substance: IRBESARTAN
     Dosage: UNK UNK, QD
     Route: 048
     Dates: start: 2007
  10. DIANICOTYL [Concomitant]
     Dosage: 100 MG, TID
     Route: 048
     Dates: start: 20170430
  11. NOZAC [Concomitant]
     Dosage: 1.25 MG, QD
     Route: 048
     Dates: start: 2007
  12. METHYLPREDISOLONE [Concomitant]
     Active Substance: METHYLPREDNISOLONE
     Dosage: 8 MG, UNK
     Route: 065
     Dates: start: 20171220
  13. ENDOXAN                            /00021101/ [Suspect]
     Active Substance: CYCLOPHOSPHAMIDE
     Indication: PLASMA CELL MYELOMA
     Dosage: 640 MILLIGRAM
     Route: 042
     Dates: start: 20170421
  14. SOLURIC [Concomitant]
     Active Substance: ALLOPURINOL
     Dosage: 300 MG, UNK
     Route: 065
     Dates: start: 2015
  15. CLOVELEN [Concomitant]
     Active Substance: CLOPIDOGREL BISULFATE
     Dosage: 75 MG, UNK
     Route: 065
     Dates: start: 2007
  16. LOSEC [Concomitant]
     Active Substance: OMEPRAZOLE
     Dosage: 20 MG, QD
     Route: 048
     Dates: start: 20170430
  17. JANUMET [Concomitant]
     Active Substance: METFORMIN HYDROCHLORIDE\SITAGLIPTIN PHOSPHATE
     Dosage: UNK UNK, QD
     Route: 048
     Dates: start: 2007
  18. BORTEZOMIB. [Suspect]
     Active Substance: BORTEZOMIB
     Indication: PLASMA CELL MYELOMA
     Dosage: 2.8 MILLIGRAM
     Route: 058
     Dates: start: 20170421
  19. ZIPION [Concomitant]
     Dosage: 15 MG, QD
     Route: 048
     Dates: start: 2007
  20. DARATUMUMAB [Suspect]
     Active Substance: DARATUMUMAB
     Indication: PLASMA CELL MYELOMA
     Dosage: 16 MILLIGRAM/KILOGRAM
     Route: 042
     Dates: start: 20171220
  21. PARACETAMOL [Concomitant]
     Active Substance: ACETAMINOPHEN
     Dosage: 1000 MG, UNK
     Route: 042
     Dates: start: 20171220
  22. TROFOCARD [Concomitant]
     Dosage: UNK
     Route: 065
     Dates: start: 2017
  23. DECADRON [Suspect]
     Active Substance: DEXAMETHASONE
     Indication: PLASMA CELL MYELOMA
     Dosage: 20 MILLIGRAM
     Route: 048
     Dates: start: 20170421, end: 20170928
  24. VALTREX [Concomitant]
     Active Substance: VALACYCLOVIR HYDROCHLORIDE
     Dosage: 500 MG, QD
     Route: 048
     Dates: start: 20170515
  25. ZOFRAN [Concomitant]
     Active Substance: ONDANSETRON HYDROCHLORIDE
     Dosage: 8 MG, UNK
     Route: 042
     Dates: start: 20171227

REACTIONS (4)
  - Lower respiratory tract infection [Recovered/Resolved]
  - Respiratory tract infection [Recovered/Resolved]
  - Pain in extremity [Recovered/Resolved]
  - Klebsiella infection [Recovered/Resolved]

NARRATIVE: CASE EVENT DATE: 20170925
